FAERS Safety Report 11864573 (Version 2)
Quarter: 2015Q4

REPORT INFORMATION
  Report Type: Spontaneous
  Country: FR (occurrence: FR)
  Receive Date: 20151223
  Receipt Date: 20151229
  Transmission Date: 20160305
  Serious: Yes (Hospitalization, Other)
  Sender: FDA-Public Use
  Company Number: FR-TEVA-619350ISR

PATIENT
  Age: 83 Year
  Sex: Female

DRUGS (4)
  1. CARBIDOPA LEVODOPA TEVA [Suspect]
     Active Substance: CARBIDOPA\LEVODOPA
  2. CARBIDOPA LEVODOPA TEVA [Suspect]
     Active Substance: CARBIDOPA\LEVODOPA
     Dosage: 3 DOSAGE FORMS DAILY; DAILY DOSE=3DF; 1 DF= CARBIDOPA 25 MG + LEVODOPA 250 MG.
  3. CARBIDOPA LEVODOPA TEVA [Suspect]
     Active Substance: CARBIDOPA\LEVODOPA
  4. CARBIDOPA LEVODOPA TEVA [Suspect]
     Active Substance: CARBIDOPA\LEVODOPA
     Dosage: 3 DOSAGE FORMS DAILY; DAILY DOSE=3DF; 1 DF= CARBIDOPA 10 MG + LEVODOPA 100 MG.

REACTIONS (7)
  - Cerebrovascular accident [Unknown]
  - Oedema [Unknown]
  - Cardiac failure [Unknown]
  - Epilepsy [Unknown]
  - Dysphagia [Unknown]
  - Urinary tract infection [Unknown]
  - Hemiplegia [Unknown]

NARRATIVE: CASE EVENT DATE: 2015
